FAERS Safety Report 5483477-2 (Version None)
Quarter: 2007Q4

REPORT INFORMATION
  Report Type: 
  Country: None (occurrence: None)
  Receive Date: 20071012
  Receipt Date: 20071009
  Transmission Date: 20080405
  Serious: Yes (Hospitalization, Other)
  Sender: FDA-Public Use
  Company Number: US-BRISTOL-MYERS SQUIBB COMPANY-13935218

PATIENT
  Age: 71 Year
  Sex: Female
  Weight: 71 kg

DRUGS (13)
  1. MUCOMYST [Suspect]
  2. TEMODAR [Suspect]
     Indication: GLIOBLASTOMA MULTIFORME
     Route: 048
     Dates: start: 20070806, end: 20070917
  3. ASPIRIN [Suspect]
  4. DECADRON [Suspect]
  5. DIGOXIN [Suspect]
  6. DUONEB [Suspect]
  7. LASIX [Suspect]
  8. LEVAQUIN [Suspect]
  9. RADIATION THERAPY [Suspect]
     Dosage: TOTAL DOSE 60GY; TOTAL FRACTIONS GIVEN 22
     Dates: start: 20070806, end: 20070917
  10. COLACE [Concomitant]
  11. LIPITOR [Concomitant]
  12. LOVENOX [Concomitant]
  13. METOPROLOL TARTRATE [Concomitant]

REACTIONS (7)
  - ALPHA HAEMOLYTIC STREPTOCOCCAL INFECTION [None]
  - ENCEPHALOPATHY [None]
  - FATIGUE [None]
  - HALLUCINATION [None]
  - ORAL INTAKE REDUCED [None]
  - TOXIC ENCEPHALOPATHY [None]
  - VISUAL DISTURBANCE [None]
